FAERS Safety Report 16053277 (Version 1)
Quarter: 2019Q1

REPORT INFORMATION
  Report Type: Spontaneous
  Country: US (occurrence: US)
  Receive Date: 20190308
  Receipt Date: 20190308
  Transmission Date: 20190418
  Serious: Yes (Hospitalization)
  Sender: FDA-Public Use
  Company Number: US-VERTEX PHARMACEUTICALS-2019-001929

PATIENT
  Age: 13 Year

DRUGS (1)
  1. SYMDEKO [Suspect]
     Active Substance: IVACAFTOR\TEZACAFTOR
     Indication: CYSTIC FIBROSIS
     Dosage: TEZACAFTOR 100 MG, IVACAFTOR 150 MG; IVACAFTOR 150 MG (1 TABLET), BID
     Route: 048
     Dates: start: 201804

REACTIONS (1)
  - Therapeutic embolisation [Not Recovered/Not Resolved]

NARRATIVE: CASE EVENT DATE: 20190212
